FAERS Safety Report 7628296-3 (Version None)
Quarter: 2011Q3

REPORT INFORMATION
  Report Type: 
  Country: None (occurrence: None)
  Receive Date: 20110722
  Receipt Date: 20110715
  Transmission Date: 20111222
  Serious: Yes (Hospitalization, Other)
  Sender: FDA-Public Use
  Company Number: CH-BAYER-2011-033149

PATIENT
  Age: 74 Year
  Sex: Female

DRUGS (6)
  1. SORAFENIB (RAF KINASE INHIBITOR) [Suspect]
     Indication: HEPATIC NEOPLASM MALIGNANT
     Dosage: 800 MG QD
     Route: 048
     Dates: start: 20110405, end: 20110411
  2. EVEROLIMUS [Suspect]
     Indication: HEPATIC NEOPLASM MALIGNANT
     Dosage: 5 MG, QD
     Route: 048
     Dates: start: 20110406, end: 20110411
  3. FLUCONAZOLE [Concomitant]
     Dosage: UNK
     Route: 042
     Dates: start: 20110422, end: 20110502
  4. TIENAM [Concomitant]
     Dosage: UNK
     Route: 042
     Dates: start: 20110421, end: 20110502
  5. EVEROLIMUS [Suspect]
     Dosage: UNK
     Dates: end: 20110502
  6. SORAFENIB (RAF KINASE INHIBITOR) [Suspect]
     Dosage: UNK
     Route: 048
     Dates: end: 20110502

REACTIONS (3)
  - DEHYDRATION [None]
  - PULMONARY EMBOLISM [None]
  - DIARRHOEA [None]
